FAERS Safety Report 10792342 (Version 2)
Quarter: 2015Q3

REPORT INFORMATION
  Report Type: Report from Study
  Country: US (occurrence: US)
  Receive Date: 20150213
  Receipt Date: 20150911
  Transmission Date: 20151125
  Serious: Yes (Death, Other)
  Sender: FDA-Public Use
  Company Number: US-SA-2015SA016585

PATIENT
  Age: 40 Year
  Sex: Male

DRUGS (1)
  1. FABRAZYME [Suspect]
     Active Substance: AGALSIDASE BETA
     Indication: FABRY^S DISEASE
     Route: 041
     Dates: start: 20051004

REACTIONS (2)
  - Death [Fatal]
  - Fistula [Recovering/Resolving]

NARRATIVE: CASE EVENT DATE: 201501
